FAERS Safety Report 7002727-4 (Version None)
Quarter: 2010Q3

REPORT INFORMATION
  Report Type: 
  Country: None (occurrence: None)
  Receive Date: 20100920
  Receipt Date: 20070723
  Transmission Date: 20110219
  Serious: Yes (Other)
  Sender: FDA-Public Use
  Company Number: US-ASTRAZENECA-2007UW09608

PATIENT
  Age: 19609 Day
  Sex: Female
  Weight: 95.3 kg

DRUGS (9)
  1. SEROQUEL [Suspect]
     Indication: SLEEP DISORDER THERAPY
     Route: 048
     Dates: start: 20050401
  2. SEROQUEL [Suspect]
     Dosage: 100 MG TO 150 MG
     Route: 048
     Dates: start: 20060117
  3. CLONAZEPAM [Concomitant]
     Route: 048
     Dates: start: 20030113
  4. ZYPREXA [Concomitant]
     Route: 048
     Dates: start: 20030113
  5. FLUOXETINE [Concomitant]
     Route: 048
     Dates: start: 20030113
  6. HYDROCHLOROTHIAZIDE [Concomitant]
     Route: 048
     Dates: start: 20030911
  7. BEXTRA [Concomitant]
     Route: 048
     Dates: start: 20040902
  8. KETOPROFEN [Concomitant]
     Route: 048
     Dates: start: 20040902
  9. ZANTAC [Concomitant]
     Route: 048
     Dates: start: 20040902

REACTIONS (1)
  - PANCREATITIS ACUTE [None]
